FAERS Safety Report 16046962 (Version 1)
Quarter: 2019Q1

REPORT INFORMATION
  Report Type: Spontaneous
  Country: US (occurrence: US)
  Receive Date: 20190307
  Receipt Date: 20190307
  Transmission Date: 20190418
  Serious: No
  Sender: FDA-Public Use
  Company Number: US-PFIZER INC-2019098821

PATIENT
  Age: 2 Year
  Sex: Male

DRUGS (1)
  1. EUCRISA [Suspect]
     Active Substance: CRISABOROLE
     Dosage: UNK, 2X/DAY(APPLY TO AFFECTED AREAS TWICE A DAY)
     Dates: start: 201901

REACTIONS (3)
  - Application site erythema [Unknown]
  - Drug ineffective [Unknown]
  - Application site burn [Unknown]
